FAERS Safety Report 9017563 (Version 3)
Quarter: 2013Q1

REPORT INFORMATION
  Report Type: Spontaneous
  Country: PT (occurrence: PT)
  Receive Date: 20130117
  Receipt Date: 20130131
  Transmission Date: 20140127
  Serious: Yes (Disabling, Other)
  Sender: FDA-Public Use
  Company Number: PT-PFIZER INC-2013014517

PATIENT
  Age: 36 Year
  Sex: Male
  Weight: 80 kg

DRUGS (5)
  1. ZITHROMAX [Suspect]
     Indication: TONSILLITIS
     Dosage: 500 MG, 1X/DAY
     Route: 048
     Dates: start: 20130109, end: 20130110
  2. CODIPRONT [Concomitant]
     Indication: COUGH
     Dosage: UNK
     Route: 048
  3. NEXIUM [Concomitant]
     Dosage: UNK
     Route: 048
  4. CRESTOR [Concomitant]
     Dosage: 10 MG, UNK
     Route: 048
  5. DAFALGAN [Concomitant]
     Dosage: 1 G, UNK
     Route: 048

REACTIONS (11)
  - Sensory loss [Recovered/Resolved]
  - Blood blister [Recovered/Resolved]
  - Haematoma [Recovered/Resolved]
  - Pruritus [Recovered/Resolved]
  - Gait disturbance [Recovered/Resolved]
  - Impaired driving ability [Recovered/Resolved]
  - Paraesthesia [Recovered/Resolved]
  - Pain in extremity [Recovered/Resolved]
  - Insomnia [Recovered/Resolved]
  - Skin exfoliation [Recovered/Resolved]
  - Off label use [Recovered/Resolved]
